FAERS Safety Report 9888942 (Version 2)
Quarter: 2014Q2

REPORT INFORMATION
  Report Type: Spontaneous
  Country: JP (occurrence: JP)
  Receive Date: 20140211
  Receipt Date: 20140507
  Transmission Date: 20141212
  Serious: Yes (Hospitalization, Other)
  Sender: FDA-Public Use
  Company Number: JP-UCBSA-111495

PATIENT
  Age: 12 Month
  Sex: Female
  Weight: 10 kg

DRUGS (8)
  1. E KEPPRA [Suspect]
     Indication: EPILEPSY
     Dosage: DAILY DOSE: 100 MG
     Route: 048
     Dates: start: 20140108, end: 20140110
  2. ROZEREM [Concomitant]
     Dosage: DAILY DOSE: 2 MG
     Route: 048
     Dates: start: 20140109, end: 20140110
  3. PHENOBARBITAL [Concomitant]
     Route: 048
     Dates: start: 20140228, end: 20140313
  4. PHENOBARBITAL [Concomitant]
     Dosage: DAILY DOSE: 30MG
     Route: 048
     Dates: start: 20140314
  5. DANTRIUM [Concomitant]
     Route: 048
     Dates: start: 20131001, end: 20131107
  6. DANTRIUM [Concomitant]
     Dosage: DAILY DOSE: 9 MG
     Route: 048
     Dates: start: 20131108
  7. MIYA BM [Concomitant]
     Dosage: DAILY DOSE: 0.6 G
     Route: 048
     Dates: start: 20130924
  8. CEREKINON [Concomitant]
     Dosage: DAILY DOSE: 40 MG
     Route: 048
     Dates: start: 20131115

REACTIONS (1)
  - Rhabdomyolysis [Recovering/Resolving]
